FAERS Safety Report 7426151-5 (Version None)
Quarter: 2011Q2

REPORT INFORMATION
  Report Type: 
  Country: None (occurrence: None)
  Receive Date: 20110420
  Receipt Date: 20110413
  Transmission Date: 20111010
  Serious: Yes (Other)
  Sender: FDA-Public Use
  Company Number: PHEH2010US03394

PATIENT
  Sex: Female

DRUGS (1)
  1. ZELNORM [Suspect]
     Route: 048

REACTIONS (5)
  - ELECTROCARDIOGRAM ST-T CHANGE [None]
  - INJURY [None]
  - ATRIOVENTRICULAR BLOCK FIRST DEGREE [None]
  - SUPRAVENTRICULAR EXTRASYSTOLES [None]
  - CARDIAC DISORDER [None]
